FAERS Safety Report 25545607 (Version 3)
Quarter: 2025Q3

REPORT INFORMATION
  Report Type: Spontaneous
  Country: US (occurrence: US)
  Receive Date: 20250711
  Receipt Date: 20250804
  Transmission Date: 20251020
  Serious: Yes (Hospitalization)
  Sender: MERCK SHARP & DOHME LLC
  Company Number: US-009507513-2304544

PATIENT
  Sex: Female
  Weight: 108.8 kg

DRUGS (47)
  1. WINREVAIR [Suspect]
     Active Substance: SOTATERCEPT-CSRK
     Route: 065
     Dates: start: 202506, end: 202506
  2. WINREVAIR [Suspect]
     Active Substance: SOTATERCEPT-CSRK
  3. WINREVAIR [Suspect]
     Active Substance: SOTATERCEPT-CSRK
  4. WINREVAIR [Suspect]
     Active Substance: SOTATERCEPT-CSRK
  5. REMODULIN [Suspect]
     Active Substance: TREPROSTINIL
     Indication: Pulmonary hypertension
     Route: 058
     Dates: start: 20230314
  6. REMODULIN [Suspect]
     Active Substance: TREPROSTINIL
     Indication: Pulmonary hypertension
     Route: 058
     Dates: start: 2025
  7. DIAZEPAM [Concomitant]
     Active Substance: DIAZEPAM
  8. NARATRIPTAN HYDROCHLORIDE [Concomitant]
     Active Substance: NARATRIPTAN HYDROCHLORIDE
  9. MOTEGRITY [Concomitant]
     Active Substance: PRUCALOPRIDE SUCCINATE
  10. VITAMIN D3 [Concomitant]
     Active Substance: CHOLECALCIFEROL
  11. CYANOCOBALAMIN [Concomitant]
     Active Substance: CYANOCOBALAMIN
  12. DIPHENHYDRAMINE HYDROCHLORIDE [Concomitant]
     Active Substance: DIPHENHYDRAMINE HYDROCHLORIDE
  13. PROMETHAZINE HYDROCHLORIDE [Concomitant]
     Active Substance: PROMETHAZINE HYDROCHLORIDE
  14. MAGNESIUM OXIDE [Concomitant]
     Active Substance: MAGNESIUM OXIDE
  15. MIRTAZAPINE [Concomitant]
     Active Substance: MIRTAZAPINE
  16. ALBUTEROL SULFATE [Concomitant]
     Active Substance: ALBUTEROL SULFATE
  17. OXYGEN [Concomitant]
     Active Substance: OXYGEN
  18. METHYLCELLULOSES [Concomitant]
     Active Substance: METHYLCELLULOSES
  19. DILAUDID [Concomitant]
     Active Substance: HYDROMORPHONE HYDROCHLORIDE
  20. PRAZOSIN HYDROCHLORIDE [Concomitant]
     Active Substance: PRAZOSIN HYDROCHLORIDE
  21. SPIRONOLACTONE [Concomitant]
     Active Substance: SPIRONOLACTONE
  22. LIDOCAINE HYDROCHLORIDE [Concomitant]
     Active Substance: LIDOCAINE HYDROCHLORIDE
  23. GABAPENTIN [Concomitant]
     Active Substance: GABAPENTIN
  24. COLACE CLEAR [Concomitant]
     Active Substance: DOCUSATE SODIUM
  25. TADALAFIL [Concomitant]
     Active Substance: TADALAFIL
  26. FAMOTIDINE [Concomitant]
     Active Substance: FAMOTIDINE
  27. MIRENA [Concomitant]
     Active Substance: LEVONORGESTREL
  28. ALPRAZOLAM [Concomitant]
     Active Substance: ALPRAZOLAM
  29. UBRELVY [Concomitant]
     Active Substance: UBROGEPANT
  30. GRANISETRON HYDROCHLORIDE [Concomitant]
     Active Substance: GRANISETRON HYDROCHLORIDE
  31. CHLORZOXAZONE [Concomitant]
     Active Substance: CHLORZOXAZONE
  32. LIBRAX [Concomitant]
     Active Substance: CHLORDIAZEPOXIDE HYDROCHLORIDE\CLIDINIUM BROMIDE
  33. SODIUM CHLORIDE [Concomitant]
     Active Substance: SODIUM CHLORIDE
  34. NADOLOL [Concomitant]
     Active Substance: NADOLOL
  35. DEXILANT [Concomitant]
     Active Substance: DEXLANSOPRAZOLE
  36. EMGALITY [Concomitant]
     Active Substance: GALCANEZUMAB-GNLM
  37. TORSEMIDE [Concomitant]
     Active Substance: TORSEMIDE
  38. DEPAKOTE [Concomitant]
     Active Substance: DIVALPROEX SODIUM
  39. HYDROXYZINE HYDROCHLORIDE [Concomitant]
     Active Substance: HYDROXYZINE HYDROCHLORIDE
  40. FLONASE ALLERGY RELIEF [Concomitant]
     Active Substance: FLUTICASONE PROPIONATE
  41. VITAMIN D2 [Concomitant]
     Active Substance: ERGOCALCIFEROL
  42. OPSUMIT [Concomitant]
     Active Substance: MACITENTAN
  43. KETOROLAC TROMETHAMINE [Concomitant]
     Active Substance: KETOROLAC TROMETHAMINE
  44. IMODIUM A-D [Concomitant]
     Active Substance: LOPERAMIDE HYDROCHLORIDE
  45. CLARITIN [Concomitant]
     Active Substance: LORATADINE
  46. EFFEXOR [Concomitant]
     Active Substance: VENLAFAXINE HYDROCHLORIDE
  47. TEMAZEPAM [Concomitant]
     Active Substance: TEMAZEPAM

REACTIONS (4)
  - Platelet count decreased [Recovered/Resolved]
  - Increased dose administered [Unknown]
  - Haemoglobin increased [Unknown]
  - Product dose omission issue [Unknown]

NARRATIVE: CASE EVENT DATE: 20250101
